FAERS Safety Report 24360898 (Version 1)
Quarter: 2024Q3

REPORT INFORMATION
  Report Type: Report from Study
  Country: US (occurrence: US)
  Receive Date: 20240925
  Receipt Date: 20240925
  Transmission Date: 20241016
  Serious: Yes (Other)
  Sender: AMGEN
  Company Number: US-AMGEN-USASL2024186669

PATIENT
  Age: 83 Year
  Sex: Male

DRUGS (3)
  1. KRYSTEXXA [Suspect]
     Active Substance: PEGLOTICASE
     Indication: Product used for unknown indication
     Dosage: UNK
     Route: 042
     Dates: start: 20240528
  2. KRYSTEXXA [Suspect]
     Active Substance: PEGLOTICASE
     Dosage: UNK, INFUSION SIXTH
     Route: 042
     Dates: start: 20240815
  3. KRYSTEXXA [Suspect]
     Active Substance: PEGLOTICASE
     Dosage: UNK, INFUSION SEVEN
     Route: 042
     Dates: start: 20240823, end: 20240823

REACTIONS (6)
  - Depressed level of consciousness [Unknown]
  - Flushing [Recovered/Resolved]
  - Hypotension [Unknown]
  - Tachycardia [Unknown]
  - Lethargy [Unknown]
  - Condition aggravated [Not Recovered/Not Resolved]

NARRATIVE: CASE EVENT DATE: 20240101
